FAERS Safety Report 14425922 (Version 1)
Quarter: 2018Q1

REPORT INFORMATION
  Report Type: Spontaneous
  Country: ES (occurrence: ES)
  Receive Date: 20180123
  Receipt Date: 20180123
  Transmission Date: 20180509
  Serious: Yes (Hospitalization, Other)
  Sender: FDA-Public Use
  Company Number: ES-PFIZER INC-2018029555

PATIENT
  Age: 20 Month
  Sex: Male

DRUGS (4)
  1. SEVOFLURANO [Suspect]
     Active Substance: SEVOFLURANE
     Dosage: 3 %, UNK
     Dates: start: 20171201, end: 20171201
  2. FENTANILO /00174601/ [Suspect]
     Active Substance: FENTANYL
     Dosage: 20 UG, UNK
     Dates: start: 20171201, end: 20171201
  3. KETAMINE HCL [Suspect]
     Active Substance: KETAMINE HYDROCHLORIDE
     Dosage: 5 MG, UNK
     Dates: start: 20171201, end: 20171201
  4. ATROPINA [Suspect]
     Active Substance: ATROPINE
     Dosage: 0.2 MG, UNK
     Dates: start: 20171201, end: 20171201

REACTIONS (1)
  - Angioedema [Recovered/Resolved]

NARRATIVE: CASE EVENT DATE: 20171201
